FAERS Safety Report 17986253 (Version 1)
Quarter: 2020Q3

REPORT INFORMATION
  Report Type: Spontaneous
  Country: US (occurrence: US)
  Receive Date: 20200706
  Receipt Date: 20200706
  Transmission Date: 20201103
  Serious: Yes (Other)
  Sender: FDA-Public Use
  Company Number: US-ELI_LILLY_AND_COMPANY-US202006011101

PATIENT
  Age: 76 Year
  Sex: Male

DRUGS (2)
  1. TRULICITY [Suspect]
     Active Substance: DULAGLUTIDE
     Dosage: 1.5 MG, UNKNOWN
     Route: 058
  2. TRULICITY [Suspect]
     Active Substance: DULAGLUTIDE
     Indication: PRODUCT USED FOR UNKNOWN INDICATION
     Dosage: 0.75 MG, UNKNOWN
     Route: 058

REACTIONS (13)
  - Inappropriate schedule of product administration [Unknown]
  - Vertigo [Unknown]
  - Dizziness [Unknown]
  - Pain [Unknown]
  - Head injury [Unknown]
  - Dehydration [Unknown]
  - Constipation [Unknown]
  - Mobility decreased [Unknown]
  - Balance disorder [Unknown]
  - Syncope [Unknown]
  - Fall [Unknown]
  - Joint injury [Unknown]
  - Visual impairment [Unknown]

NARRATIVE: CASE EVENT DATE: 202006
